FAERS Safety Report 6166242-2 (Version None)
Quarter: 2009Q2

REPORT INFORMATION
  Report Type: 
  Country: None (occurrence: None)
  Receive Date: 20090424
  Receipt Date: 20090420
  Transmission Date: 20091009
  Serious: Yes (Other)
  Sender: FDA-Public Use
  Company Number: PHHY2009JP10841

PATIENT
  Age: 39 Year
  Sex: Female

DRUGS (5)
  1. TEGRETOL [Suspect]
     Indication: TREMOR
     Dosage: 200 MG, TID
     Route: 048
  2. DEPAS [Concomitant]
     Dosage: 1.5 MG
     Route: 048
  3. MYONAL [Concomitant]
     Dosage: 150 MG
     Route: 048
  4. HERBESSOR R [Concomitant]
     Dosage: 200 MG
     Route: 048
  5. SIGMART [Concomitant]
     Dosage: 15 MG
     Route: 048

REACTIONS (2)
  - HYPONATRAEMIA [None]
  - MALAISE [None]
